FAERS Safety Report 14957193 (Version 3)
Quarter: 2018Q4

REPORT INFORMATION
  Report Type: Report from Study
  Country: CA (occurrence: CA)
  Receive Date: 20180531
  Receipt Date: 20181220
  Transmission Date: 20190204
  Serious: Yes (Hospitalization)
  Sender: FDA-Public Use
  Company Number: CA-BRISTOL-MYERS SQUIBB COMPANY-BMS-2017-042602

PATIENT
  Age: 66 Year
  Sex: Female

DRUGS (11)
  1. NADOLOL. [Concomitant]
     Active Substance: NADOLOL
     Indication: LIVER DISORDER
     Dosage: 40 MG, UNK
     Route: 048
  2. ABATACEPT [Suspect]
     Active Substance: ABATACEPT
     Indication: PRODUCT USED FOR UNKNOWN INDICATION
     Dosage: 750 MG, Q3WK
     Route: 042
  3. NADOLOL. [Concomitant]
     Active Substance: NADOLOL
     Indication: HEPATIC CIRRHOSIS
     Route: 065
  4. ELAVIL [Concomitant]
     Active Substance: AMITRIPTYLINE HYDROCHLORIDE
     Indication: PAIN
     Dosage: 30 MG, UNK
     Route: 048
  5. FUROSEMIDE. [Concomitant]
     Active Substance: FUROSEMIDE
     Indication: HEPATIC CIRRHOSIS
     Dosage: 40 MG, UNK
     Route: 048
  6. ABATACEPT [Suspect]
     Active Substance: ABATACEPT
     Indication: RHEUMATOID ARTHRITIS
     Dosage: 750 MG, Q4WK
     Route: 042
     Dates: start: 20150512
  7. GABAPENTIN. [Concomitant]
     Active Substance: GABAPENTIN
     Indication: PAIN
     Dosage: 300 MG, BID
     Route: 048
  8. PANTOLOC                           /01263201/ [Concomitant]
     Active Substance: PANTOPRAZOLE SODIUM
     Indication: GASTROINTESTINAL DISORDER
     Dosage: 40 MG, UNK
     Route: 048
  9. PANTOLOC                           /01263201/ [Concomitant]
     Active Substance: PANTOPRAZOLE SODIUM
     Indication: HEPATIC CIRRHOSIS
     Route: 065
  10. ASA [Concomitant]
     Active Substance: ASPIRIN
     Indication: CORONARY ARTERY DISEASE
     Dosage: 81 MG, UNK
     Route: 048
  11. CRESTOR [Concomitant]
     Active Substance: ROSUVASTATIN CALCIUM
     Indication: BLOOD CHOLESTEROL INCREASED
     Dosage: 10 MG, UNK
     Route: 048

REACTIONS (15)
  - Asthenia [Unknown]
  - Pain [Unknown]
  - Ear pain [Unknown]
  - Pollakiuria [Unknown]
  - Ear disorder [Unknown]
  - Nausea [Unknown]
  - Arthralgia [Unknown]
  - Dizziness [Unknown]
  - Ear haemorrhage [Unknown]
  - Blood glucose decreased [Unknown]
  - Gait disturbance [Unknown]
  - Vertigo [Unknown]
  - Hyperhidrosis [Unknown]
  - Pallor [Unknown]
  - Off label use [Recovering/Resolving]

NARRATIVE: CASE EVENT DATE: 20180607
